FAERS Safety Report 22385587 (Version 9)
Quarter: 2024Q3

REPORT INFORMATION
  Report Type: Spontaneous
  Country: JP (occurrence: None)
  Receive Date: 20230530
  Receipt Date: 20240917
  Transmission Date: 20241016
  Serious: Yes (Hospitalization)
  Sender: ASTRAZENECA
  Company Number: 2023A076414

PATIENT
  Age: 2 Year
  Sex: Male

DRUGS (19)
  1. KOSELUGO [Suspect]
     Active Substance: SELUMETINIB
     Indication: Neurofibromatosis
     Dosage: GENERALLY ON EMPTY STOMACH, BUMBER OF SEPARATE DOSAGES UNKNOWN
     Route: 048
     Dates: start: 20230322, end: 20230408
  2. KOSELUGO [Suspect]
     Active Substance: SELUMETINIB
     Indication: Neurofibroma
     Dosage: GENERALLY ON EMPTY STOMACH, BUMBER OF SEPARATE DOSAGES UNKNOWN
     Route: 048
     Dates: start: 20230322, end: 20230408
  3. KOSELUGO [Suspect]
     Active Substance: SELUMETINIB
     Indication: Neurofibromatosis
     Dosage: GENERALLY ON EMPTY STOMACH
     Route: 048
     Dates: start: 20230322, end: 20230408
  4. KOSELUGO [Suspect]
     Active Substance: SELUMETINIB
     Indication: Neurofibroma
     Dosage: GENERALLY ON EMPTY STOMACH
     Route: 048
     Dates: start: 20230322, end: 20230408
  5. KOSELUGO [Suspect]
     Active Substance: SELUMETINIB
     Indication: Neurofibromatosis
     Dosage: GENERALLY ON EMPTY STOMACH, BUMBER OF SEPARATE DOSAGES UNKNOWN
     Route: 048
     Dates: start: 2023, end: 20230408
  6. KOSELUGO [Suspect]
     Active Substance: SELUMETINIB
     Indication: Neurofibroma
     Dosage: GENERALLY ON EMPTY STOMACH, BUMBER OF SEPARATE DOSAGES UNKNOWN
     Route: 048
     Dates: start: 2023, end: 20230408
  7. KOSELUGO [Suspect]
     Active Substance: SELUMETINIB
     Indication: Neurofibromatosis
     Dosage: GENERALLY ON EMPTY STOMACH, BUMBER OF SEPARATE DOSAGES UNKNOWN
     Route: 048
     Dates: start: 20230417, end: 2023
  8. KOSELUGO [Suspect]
     Active Substance: SELUMETINIB
     Indication: Neurofibroma
     Dosage: GENERALLY ON EMPTY STOMACH, BUMBER OF SEPARATE DOSAGES UNKNOWN
     Route: 048
     Dates: start: 20230417, end: 2023
  9. KOSELUGO [Suspect]
     Active Substance: SELUMETINIB
     Indication: Neurofibromatosis
     Dosage: DOSE UNKNOWN
     Route: 048
     Dates: start: 2023
  10. KOSELUGO [Suspect]
     Active Substance: SELUMETINIB
     Indication: Neurofibroma
     Dosage: DOSE UNKNOWN
     Route: 048
     Dates: start: 2023
  11. KOSELUGO [Suspect]
     Active Substance: SELUMETINIB
     Indication: Neurofibromatosis
     Dosage: NUMBER OF SEPARATE DOSAGES UNKNOWN
     Route: 048
     Dates: start: 2023, end: 20240301
  12. KOSELUGO [Suspect]
     Active Substance: SELUMETINIB
     Indication: Neurofibroma
     Dosage: NUMBER OF SEPARATE DOSAGES UNKNOWN
     Route: 048
     Dates: start: 2023, end: 20240301
  13. KOSELUGO [Suspect]
     Active Substance: SELUMETINIB
     Indication: Neurofibromatosis
     Dosage: GENERALLY ON EMPTY STOMACH, BUMBER OF SEPARATE DOSAGES UNKNOWN
     Route: 048
     Dates: start: 20240302
  14. KOSELUGO [Suspect]
     Active Substance: SELUMETINIB
     Indication: Neurofibroma
     Dosage: GENERALLY ON EMPTY STOMACH, BUMBER OF SEPARATE DOSAGES UNKNOWN
     Route: 048
     Dates: start: 20240302
  15. GLYCOSAMINOGLYCANS [Concomitant]
     Active Substance: GLYCOSAMINOGLYCANS
     Dosage: DOSE UNKNOWN
     Route: 062
  16. LOCOID [Concomitant]
     Active Substance: HYDROCORTISONE BUTYRATE
     Indication: Dermatitis atopic
     Dosage: DOSE UNKNOWN
     Dates: start: 20230411
  17. XYZAL [Concomitant]
     Active Substance: LEVOCETIRIZINE DIHYDROCHLORIDE
     Indication: Dermatitis atopic
     Dosage: DOSE UNKNOWN
     Route: 048
     Dates: start: 20230522
  18. RINDERON [Concomitant]
     Indication: Dermatitis atopic
     Dates: start: 20230411
  19. PRANLUKAST [Concomitant]
     Active Substance: PRANLUKAST
     Indication: Asthma
     Dosage: DOSE UNKNOWN
     Route: 048
     Dates: start: 20230411

REACTIONS (6)
  - Asthma [Recovered/Resolved]
  - Diarrhoea [Recovered/Resolved]
  - Eczema [Not Recovered/Not Resolved]
  - Dermatitis acneiform [Not Recovered/Not Resolved]
  - Off label use [Unknown]
  - Treatment noncompliance [Unknown]

NARRATIVE: CASE EVENT DATE: 20230324
